FAERS Safety Report 9671440 (Version 2)
Quarter: 2013Q4

REPORT INFORMATION
  Report Type: Spontaneous
  Country: US (occurrence: US)
  Receive Date: 20131106
  Receipt Date: 20131125
  Transmission Date: 20140711
  Serious: Yes (Other)
  Sender: FDA-Public Use
  Company Number: US-PFIZER INC-2013312824

PATIENT
  Age: 73 Year
  Sex: Female
  Weight: 74.83 kg

DRUGS (2)
  1. LATANOPROST [Suspect]
     Indication: GLAUCOMA
     Dosage: 1 GTT, 1X/DAY (IN EACH EYE AT BEDTIME)
     Route: 047
     Dates: start: 20131027, end: 20131028
  2. ASACOL [Concomitant]
     Indication: INFLAMMATORY BOWEL DISEASE
     Dosage: UNK, 1X/DAY
     Dates: start: 1997

REACTIONS (11)
  - Apparent death [Recovered/Resolved]
  - Dyspnoea [Recovered/Resolved]
  - Increased bronchial secretion [Recovered/Resolved]
  - Oedema mouth [Recovered/Resolved]
  - Product quality issue [Unknown]
  - Gingival swelling [Recovered/Resolved]
  - Sleep disorder [Recovered/Resolved]
  - Cough [Recovered/Resolved]
  - Secretion discharge [Recovered/Resolved]
  - Chills [Recovered/Resolved]
  - Pyrexia [Recovered/Resolved]
